FAERS Safety Report 8037458-5 (Version None)
Quarter: 2012Q1

REPORT INFORMATION
  Report Type: 
  Country: None (occurrence: None)
  Receive Date: 20120111
  Receipt Date: 20120106
  Transmission Date: 20120608
  Serious: Yes (Other)
  Sender: FDA-Public Use
  Company Number: US-PFIZER INC-2012004968

PATIENT
  Sex: Male
  Weight: 81.633 kg

DRUGS (18)
  1. VITAMIN B6 [Concomitant]
     Dosage: UNK
  2. NEXIUM [Concomitant]
     Indication: GASTRIC DISORDER
     Dosage: 40 MG, DAILY
     Route: 048
  3. VITAMIN B-12 [Concomitant]
     Indication: DIALYSIS
     Dosage: UNK
  4. VITAMIN E [Concomitant]
     Dosage: 400 IU, UNK
  5. TOPROL-XL [Concomitant]
     Indication: HEART RATE INCREASED
     Dosage: 50 MG,DAILY
     Route: 048
  6. ACETYLSALICYLIC ACID [Concomitant]
     Indication: COAGULOPATHY
     Dosage: 81 MG, DAILY
     Route: 048
  7. LIPITOR [Concomitant]
     Indication: BLOOD CHOLESTEROL ABNORMAL
     Dosage: 40 MG, DAILY
     Route: 048
  8. EFFEXOR XR [Suspect]
     Dosage: 150 MG, DAILY
     Route: 048
     Dates: start: 20080201
  9. ZINC [Concomitant]
     Dosage: UNK
  10. BETACAROTENE [Concomitant]
     Dosage: UNK
  11. EFFEXOR XR [Suspect]
     Indication: MOOD SWINGS
     Dosage: 75 MG, DAILY
     Route: 048
     Dates: start: 20080101
  12. WARFARIN SODIUM [Concomitant]
     Indication: COAGULOPATHY
     Dosage: 1 AND 2 MG ALTERNATIVELY EACH DAY
     Route: 048
  13. SENSIPAR [Concomitant]
     Indication: DIALYSIS
     Dosage: 60 MG, DAILY
     Route: 048
  14. COENZYME Q10 [Concomitant]
     Dosage: UNK
  15. ZETIA [Concomitant]
     Indication: LDL/HDL RATIO INCREASED
     Dosage: 10 MG, DAILY
     Route: 048
  16. RANEXA [Concomitant]
     Indication: CARDIAC DISORDER
     Dosage: 500 MG, THE NIGHT BEFORE AND IN THE MORNING OF DIALYSIS
     Route: 048
  17. FOLIC ACID [Concomitant]
     Dosage: 5 MG, DAILY
     Route: 048
  18. RESTORIL [Concomitant]
     Indication: SLEEP DISORDER
     Dosage: 30 MG, DAILY
     Route: 048

REACTIONS (2)
  - APPENDICITIS [None]
  - ELECTROCARDIOGRAM QT PROLONGED [None]
